FAERS Safety Report 6331736-3 (Version None)
Quarter: 2009Q3

REPORT INFORMATION
  Report Type: 
  Country: None (occurrence: None)
  Receive Date: 20090827
  Receipt Date: 20090820
  Transmission Date: 20100115
  Serious: Yes (Life-Threatening)
  Sender: FDA-Public Use
  Company Number: PT-AMGEN-QUU359087

PATIENT
  Sex: Female
  Weight: 66 kg

DRUGS (9)
  1. NEUPOGEN [Suspect]
     Indication: CHEMOTHERAPY
     Route: 058
     Dates: start: 20090709, end: 20090731
  2. APREPITANT [Suspect]
     Route: 048
     Dates: start: 20090729, end: 20090731
  3. FLUOROURACIL [Concomitant]
     Route: 042
     Dates: start: 20090613
  4. FLUOROURACIL [Concomitant]
     Route: 048
  5. EPIRUBICIN [Concomitant]
     Route: 042
     Dates: start: 20090613
  6. EPIRUBICIN [Concomitant]
     Route: 042
     Dates: start: 20090708
  7. EPIRUBICIN [Concomitant]
     Route: 042
     Dates: start: 20090729
  8. DOCETAXEL [Concomitant]
     Route: 042
     Dates: start: 20090819, end: 20090819
  9. CYCLOPHOSPHAMIDE [Concomitant]
     Route: 042
     Dates: start: 20090613

REACTIONS (5)
  - ANAPHYLACTIC REACTION [None]
  - DYSPNOEA [None]
  - LARYNGEAL OEDEMA [None]
  - PARAESTHESIA [None]
  - TACHYCARDIA [None]
